FAERS Safety Report 7349096-8 (Version None)
Quarter: 2011Q1

REPORT INFORMATION
  Report Type: 
  Country: None (occurrence: None)
  Receive Date: 20110314
  Receipt Date: 20110309
  Transmission Date: 20110831
  Serious: Yes (Hospitalization)
  Sender: FDA-Public Use
  Company Number: DE-SANOFI-AVENTIS-2010SA070978

PATIENT
  Age: 77 Year
  Sex: Female
  Weight: 71 kg

DRUGS (10)
  1. OXALIPLATIN [Suspect]
     Route: 041
     Dates: start: 20101115, end: 20101115
  2. ANTIEMETICS AND ANTINAUSEANTS [Concomitant]
     Indication: PROPHYLAXIS
     Route: 065
     Dates: start: 20100101
  3. TAXOTERE [Suspect]
     Route: 041
     Dates: start: 20100721, end: 20100721
  4. 5-FU [Suspect]
     Route: 041
     Dates: start: 20100721, end: 20100721
  5. FOLINIC ACID [Suspect]
     Route: 041
     Dates: start: 20100721, end: 20100721
  6. 5-FU [Suspect]
     Route: 041
     Dates: start: 20101115, end: 20101115
  7. CORTICOSTEROIDS [Concomitant]
     Indication: PROPHYLAXIS
     Route: 065
     Dates: start: 20100101
  8. OXALIPLATIN [Suspect]
     Route: 041
     Dates: start: 20100721, end: 20100721
  9. TAXOTERE [Suspect]
     Route: 041
     Dates: start: 20101115, end: 20101115
  10. FOLINIC ACID [Suspect]
     Route: 041
     Dates: start: 20101115, end: 20101115

REACTIONS (1)
  - ADVERSE EVENT [None]
